FAERS Safety Report 10824796 (Version 2)
Quarter: 2015Q1

REPORT INFORMATION
  Report Type: Spontaneous
  Country: US (occurrence: US)
  Receive Date: 20150219
  Receipt Date: 20150220
  Transmission Date: 20150721
  Serious: No
  Sender: FDA-Public Use
  Company Number: US-009507513-1502USA002990

PATIENT
  Age: 18 Year
  Sex: Female
  Weight: 52.15 kg

DRUGS (1)
  1. IMPLANON [Suspect]
     Active Substance: ETONOGESTREL
     Indication: CONTRACEPTION
     Dosage: DOSE/FREQUENCY: 1 IMPLANT/3 YEARS, LEFT ARM
     Route: 059
     Dates: start: 20141028

REACTIONS (5)
  - Chest discomfort [Unknown]
  - Anxiety [Unknown]
  - Dyspnoea [Unknown]
  - Expired product administered [Unknown]
  - Implant site hypoaesthesia [Unknown]

NARRATIVE: CASE EVENT DATE: 20141028
